FAERS Safety Report 5673858-6 (Version None)
Quarter: 2008Q2

REPORT INFORMATION
  Report Type: 
  Country: None (occurrence: None)
  Receive Date: 20080226
  Receipt Date: 20070129
  Transmission Date: 20081010
  Serious: Yes (Other)
  Sender: FDA-Public Use
  Company Number: 107890

PATIENT
  Age: 16 Year
  Sex: Male
  Weight: 70.3 kg

DRUGS (1)
  1. ACCUTANE [Suspect]
     Indication: ACNE CYSTIC
     Dosage: 40 MG 2 PER 1 DAY ORAL
     Route: 048
     Dates: start: 19981010, end: 20010615

REACTIONS (14)
  - ALOPECIA [None]
  - CHAPPED LIPS [None]
  - COLITIS ULCERATIVE [None]
  - CRYING [None]
  - DANDRUFF [None]
  - ERYTHEMA [None]
  - FATIGUE [None]
  - FLUSHING [None]
  - FOLLICULITIS [None]
  - LIP DRY [None]
  - LIPOMA [None]
  - LYMPHADENOPATHY [None]
  - MOOD ALTERED [None]
  - SCAR [None]
